FAERS Safety Report 6958357-3 (Version None)
Quarter: 2010Q3

REPORT INFORMATION
  Report Type: 
  Country: None (occurrence: None)
  Receive Date: 20100831
  Receipt Date: 20100823
  Transmission Date: 20110219
  Serious: Yes (Hospitalization)
  Sender: FDA-Public Use
  Company Number: US-JNJFOC-20100808526

PATIENT
  Age: 72 Year
  Sex: Male

DRUGS (1)
  1. REMICADE [Suspect]
     Indication: PRODUCT USED FOR UNKNOWN INDICATION
     Dosage: THERAPY DURATION APPROXIMATELY 1 YEAR
     Route: 042

REACTIONS (2)
  - LYMPHOMA [None]
  - ROTATOR CUFF REPAIR [None]
